FAERS Safety Report 10153482 (Version 2)
Quarter: 2014Q2

REPORT INFORMATION
  Report Type: Spontaneous
  Country: US (occurrence: US)
  Receive Date: 20140505
  Receipt Date: 20140623
  Transmission Date: 20141212
  Serious: Yes (Other)
  Sender: FDA-Public Use
  Company Number: US-BRISTOL-MYERS SQUIBB COMPANY-20472510

PATIENT
  Age: 50 Year
  Sex: Female
  Weight: 99.77 kg

DRUGS (6)
  1. SPRYCEL (CML) TABS [Suspect]
     Indication: CHRONIC MYELOID LEUKAEMIA
     Dosage: 3L73699C EXP:DEC-2016
     Dates: start: 2008
  2. PRAVASTATIN SODIUM [Suspect]
  3. NEURONTIN [Concomitant]
  4. METFORMIN HCL [Concomitant]
  5. LEVOTHYROXINE [Concomitant]
  6. CYMBALTA [Concomitant]

REACTIONS (3)
  - Plantar fasciitis [Unknown]
  - Blood cholesterol increased [Unknown]
  - Hair texture abnormal [Unknown]
